FAERS Safety Report 4386393-2 (Version None)
Quarter: 2004Q2

REPORT INFORMATION
  Report Type: 
  Country: None (occurrence: None)
  Receive Date: 20040625
  Receipt Date: 20040625
  Transmission Date: 20050107
  Serious: Yes (Hospitalization, Disabling)
  Sender: FDA-Public Use
  Company Number: None

PATIENT
  Age: 82 Year
  Sex: Female
  Weight: 63.5036 kg

DRUGS (1)
  1. XANAX [Suspect]
     Indication: RESTLESSNESS
     Dosage: .05 INJECTION
     Dates: start: 20030824, end: 20030824

REACTIONS (4)
  - ABASIA [None]
  - APHASIA [None]
  - EATING DISORDER [None]
  - MEMORY IMPAIRMENT [None]
